FAERS Safety Report 4444558-5 (Version None)
Quarter: 2004Q3

REPORT INFORMATION
  Report Type: 
  Country: None (occurrence: None)
  Receive Date: 20040902
  Receipt Date: 20040827
  Transmission Date: 20050211
  Serious: Yes (Hospitalization, Other)
  Sender: FDA-Public Use
  Company Number: KII-2004-0013199

PATIENT
  Age: 43 Year
  Sex: Male

DRUGS (3)
  1. MORPHINE SULFATE [Suspect]
     Dosage: ORAL
     Route: 048
  2. ACETAMINOPHEN AND HYDROCODONE BITARTRATE [Suspect]
     Dosage: ORAL
     Route: 048
  3. BENZODIAZEPINE DERIVATIVES() [Suspect]
     Dosage: ORAL
     Route: 048

REACTIONS (15)
  - BLOOD PRESSURE SYSTOLIC INCREASED [None]
  - COMA [None]
  - DEPRESSED LEVEL OF CONSCIOUSNESS [None]
  - GASTROINTESTINAL MOTILITY DISORDER [None]
  - LETHARGY [None]
  - LUNG INFILTRATION [None]
  - MENTAL STATUS CHANGES [None]
  - MULTIPLE DRUG OVERDOSE INTENTIONAL [None]
  - OXYGEN SATURATION DECREASED [None]
  - PNEUMONIA ASPIRATION [None]
  - PNEUMONITIS [None]
  - POLYSUBSTANCE ABUSE [None]
  - RESPIRATORY DEPRESSION [None]
  - SEDATION [None]
  - SOMNOLENCE [None]
